FAERS Safety Report 9000984 (Version 1)
Quarter: 2013Q1

REPORT INFORMATION
  Report Type: Spontaneous
  Country: US (occurrence: None)
  Receive Date: 20130103
  Receipt Date: 20130103
  Transmission Date: 20140127
  Serious: Yes (Hospitalization, Other)
  Sender: FDA-Public Use
  Company Number: None

PATIENT
  Age: 73 Year
  Sex: Male
  Weight: 86.7 kg

DRUGS (1)
  1. MIRAPEX [Suspect]
     Indication: RESTLESS LEGS SYNDROME
     Route: 048
     Dates: start: 20120506, end: 20120522

REACTIONS (6)
  - Fluid overload [None]
  - Rash [None]
  - Dyspnoea exertional [None]
  - Fatigue [None]
  - Ventricular tachycardia [None]
  - Cardiac failure [None]
